FAERS Safety Report 4342827-0 (Version None)
Quarter: 2004Q2

REPORT INFORMATION
  Report Type: 
  Country: None (occurrence: None)
  Receive Date: 20040416
  Receipt Date: 20040412
  Transmission Date: 20050107
  Serious: Yes (Death)
  Sender: FDA-Public Use
  Company Number: 2004200835US

PATIENT
  Age: 72 Year
  Sex: Female
  Weight: 52.6 kg

DRUGS (2)
  1. CELEBREX [Suspect]
     Indication: ARTHRITIS
     Dosage: SINGLE, ORAL
     Route: 048
     Dates: start: 19980101
  2. PREMARIN [Concomitant]

REACTIONS (2)
  - LUNG NEOPLASM MALIGNANT [None]
  - WEIGHT DECREASED [None]
